FAERS Safety Report 17727283 (Version 1)
Quarter: 2020Q2

REPORT INFORMATION
  Report Type: Spontaneous
  Country: US (occurrence: US)
  Receive Date: 20200430
  Receipt Date: 20200430
  Transmission Date: 20200714
  Serious: No
  Sender: FDA-Public Use
  Company Number: US-ASTRAZENECA-2020SE55941

PATIENT
  Age: 15891 Day
  Sex: Female
  Weight: 75.7 kg

DRUGS (17)
  1. SYMBICORT [Suspect]
     Active Substance: BUDESONIDE\FORMOTEROL FUMARATE DIHYDRATE
     Indication: ASTHMA
     Dosage: 160/4.5MCG, 2 PUFFS, TWICE DAILY
     Route: 055
     Dates: start: 201804
  2. TIZANIDINE. [Concomitant]
     Active Substance: TIZANIDINE
     Dosage: EVERY 6-8 HOURS
     Route: 048
     Dates: start: 201705
  3. VENTOLIN HFA [Concomitant]
     Active Substance: ALBUTEROL SULFATE
     Indication: ASTHMA
     Dosage: 90.0UG EVERY 4 - 6 HOURS
     Route: 055
     Dates: start: 201509
  4. HYOSCYAMINE. [Concomitant]
     Active Substance: HYOSCYAMINE
     Indication: IRRITABLE BOWEL SYNDROME
     Route: 048
     Dates: start: 201801
  5. RIZOATRIPTAN [Concomitant]
     Indication: MIGRAINE
     Dosage: HALF TO 1 TABLET AT THE ONSET OF HEADACHE, MAY REPEAT EVERY 2 HRS AS NEEDED, MAX OF 3 TABLETS IN ...
     Route: 048
     Dates: start: 201704
  6. SYSTANE (HYPROMELLOSE 2910 (4000 MPA.S)) [Concomitant]
     Active Substance: HYPROMELLOSE 2910 (4000 MPA.S)
     Dosage: EVERY TWO HOURS, 1 DROP IN THE AFFECTED EYE, EVERY 2 HOURS AS NEEDED.
     Route: 047
     Dates: start: 201806
  7. AZELASTINE. [Concomitant]
     Active Substance: AZELASTINE HYDROCHLORIDE
     Indication: HYPERSENSITIVITY
     Dosage: UNKNOWN DOSE, UNIT, 1 SPRAY, IN EACH NOSTRIL, TWICE DAILY, TWO TIMES A DAY
     Route: 045
     Dates: start: 201707
  8. INCRUSE ELLIPTA [Concomitant]
     Active Substance: UMECLIDINIUM BROMIDE
     Dosage: UNKNOWN DOSE AND UNIT
     Route: 055
     Dates: start: 201804
  9. LOPERAMIDE [Concomitant]
     Active Substance: LOPERAMIDE
     Indication: DIARRHOEA
     Dosage: 2.0MG UNKNOWN
     Route: 048
     Dates: start: 2017
  10. MAGNESIUM [Concomitant]
     Active Substance: MAGNESIUM
     Route: 048
     Dates: start: 201610
  11. ARMOUR THYROID [Concomitant]
     Active Substance: THYROID, PORCINE
     Indication: HYPOTHYROIDISM
     Route: 048
     Dates: start: 201509
  12. ONDANSETRON [Concomitant]
     Active Substance: ONDANSETRON
     Indication: NAUSEA
     Dosage: 4.0MG AS REQUIRED
     Route: 048
     Dates: start: 201801
  13. FASENRA [Suspect]
     Active Substance: BENRALIZUMAB
     Indication: ASTHMA
     Route: 058
     Dates: start: 20200220
  14. BACLOFEN. [Concomitant]
     Active Substance: BACLOFEN
     Route: 048
     Dates: start: 201904
  15. LEVOCETIRIZINE [Concomitant]
     Active Substance: LEVOCETIRIZINE
     Indication: RHINITIS ALLERGIC
     Route: 048
     Dates: start: 201905
  16. SAMOTIDINE [Concomitant]
     Route: 048
     Dates: start: 201806
  17. TRINTELLIX [Concomitant]
     Active Substance: VORTIOXETINE HYDROBROMIDE
     Indication: DEPRESSION
     Route: 048
     Dates: start: 201904

REACTIONS (1)
  - Fatigue [Unknown]

NARRATIVE: CASE EVENT DATE: 20200220
